FAERS Safety Report 26210014 (Version 1)
Quarter: 2025Q4

REPORT INFORMATION
  Report Type: Spontaneous
  Country: US (occurrence: US)
  Receive Date: 20251229
  Receipt Date: 20251229
  Transmission Date: 20260119
  Serious: Yes (Hospitalization)
  Sender: VERONA PHARMA
  Company Number: US-VERONA PHARMA-VER-011459

PATIENT
  Age: 87 Year
  Sex: Female

DRUGS (1)
  1. OHTUVAYRE [Suspect]
     Active Substance: ENSIFENTRINE
     Indication: Chronic obstructive pulmonary disease
     Dosage: 3 MILLIGRAM, BID
     Dates: start: 2025, end: 20251218

REACTIONS (7)
  - Fall [Unknown]
  - Clavicle fracture [Unknown]
  - Pelvic fracture [Unknown]
  - Renal function test abnormal [Unknown]
  - Electrolyte imbalance [Unknown]
  - Balance disorder [Unknown]
  - Product use issue [Unknown]

NARRATIVE: CASE EVENT DATE: 20251208
